FAERS Safety Report 25539385 (Version 1)
Quarter: 2025Q3

REPORT INFORMATION
  Report Type: Spontaneous
  Country: CA (occurrence: CA)
  Receive Date: 20250710
  Receipt Date: 20250710
  Transmission Date: 20251020
  Serious: Yes (Life-Threatening, Hospitalization)
  Sender: MERCK SHARP & DOHME LLC
  Company Number: CA-009507513-2304045

PATIENT
  Age: 62 Year
  Sex: Male
  Weight: 55 kg

DRUGS (12)
  1. KEYTRUDA [Suspect]
     Active Substance: PEMBROLIZUMAB
     Indication: Clear cell renal cell carcinoma
     Dosage: 2 MG EVERY 21 DAYS
     Route: 042
  2. ATORVASTATIN [Concomitant]
     Active Substance: ATORVASTATIN
  3. CABOMETYX [Concomitant]
     Active Substance: CABOZANTINIB S-MALATE
  4. ELIQUIS [Concomitant]
     Active Substance: APIXABAN
     Route: 065
  5. LENVIMA [Concomitant]
     Active Substance: LENVATINIB
  6. PANTOPRAZOLE SODIUM [Concomitant]
     Active Substance: PANTOPRAZOLE SODIUM
     Route: 065
  7. VITAMIN D [Concomitant]
     Active Substance: VITAMIN D NOS
     Route: 065
  8. EZETIMIBE [Concomitant]
     Active Substance: EZETIMIBE
     Route: 065
  9. IMODIUM [Concomitant]
     Active Substance: LOPERAMIDE HYDROCHLORIDE
  10. MAGNESIUM [Concomitant]
     Active Substance: MAGNESIUM
  11. METFORMIN [Concomitant]
     Active Substance: METFORMIN HYDROCHLORIDE
     Route: 065
  12. PROLIA [Concomitant]
     Active Substance: DENOSUMAB
     Route: 065

REACTIONS (12)
  - Weight decreased [Unknown]
  - Autoimmune colitis [Unknown]
  - Colitis ulcerative [Unknown]
  - Decreased appetite [Unknown]
  - Diarrhoea [Unknown]
  - Dyspepsia [Unknown]
  - Gastrointestinal disorder [Unknown]
  - Haematochezia [Unknown]
  - Hypophagia [Unknown]
  - Nausea [Unknown]
  - Rectal haemorrhage [Unknown]
  - Vomiting [Unknown]
